FAERS Safety Report 5301953-X (Version None)
Quarter: 2007Q2

REPORT INFORMATION
  Report Type: 
  Country: None (occurrence: None)
  Receive Date: 20070419
  Receipt Date: 20070412
  Transmission Date: 20071010
  Serious: Yes (Death, Hospitalization)
  Sender: FDA-Public Use
  Company Number: FR-BRISTOL-MYERS SQUIBB COMPANY-13648274

PATIENT
  Age: 65 Year
  Sex: Female

DRUGS (7)
  1. APROVEL TABS 300 MG [Suspect]
     Indication: HYPERTENSIVE NEPHROPATHY
     Route: 048
     Dates: start: 20040901, end: 20060703
  2. RENAGEL [Concomitant]
     Route: 048
     Dates: start: 20040101
  3. TARDYFERON [Concomitant]
     Route: 048
     Dates: start: 20040101
  4. KAYEXALATE [Concomitant]
     Indication: HYPOKALAEMIA
     Route: 048
     Dates: start: 20040101
  5. OMEPRAZOLE [Concomitant]
     Indication: PROPHYLAXIS
     Route: 048
     Dates: start: 20040101
  6. LASIX [Concomitant]
     Route: 048
     Dates: start: 20040101
  7. NEORECORMON [Concomitant]
     Route: 042
     Dates: start: 20040101

REACTIONS (6)
  - INFECTION [None]
  - INTRAVASCULAR HAEMOLYSIS [None]
  - JAUNDICE [None]
  - MESENTERIC OCCLUSION [None]
  - PANCREATITIS ACUTE [None]
  - SEPTIC SHOCK [None]
